FAERS Safety Report 9858336 (Version 1)
Quarter: 2014Q1

REPORT INFORMATION
  Report Type: Spontaneous
  Country: US (occurrence: None)
  Receive Date: 20140130
  Receipt Date: 20140130
  Transmission Date: 20141002
  Serious: Yes (Life-Threatening, Disabling, Other)
  Sender: FDA-Public Use
  Company Number: None

PATIENT
  Age: 53 Year
  Sex: Male
  Weight: 83.92 kg

DRUGS (1)
  1. SEPTOCAINE [Suspect]
     Indication: ARTIFICIAL CROWN PROCEDURE

REACTIONS (6)
  - Blindness transient [None]
  - Pallor [None]
  - Visual acuity reduced [None]
  - Headache [None]
  - Paraesthesia [None]
  - Tinnitus [None]
